FAERS Safety Report 6897848-0 (Version None)
Quarter: 2010Q3

REPORT INFORMATION
  Report Type: 
  Country: None (occurrence: None)
  Receive Date: 20100802
  Receipt Date: 20070802
  Transmission Date: 20110219
  Serious: Yes (Other)
  Sender: FDA-Public Use
  Company Number: US-PFIZER INC-2007062934

PATIENT
  Sex: Female
  Weight: 90.7 kg

DRUGS (3)
  1. LYRICA [Suspect]
     Indication: NEUROPATHY PERIPHERAL
     Route: 048
     Dates: start: 20070717
  2. GLUCOTROL [Concomitant]
  3. GLUCOPHAGE [Concomitant]

REACTIONS (5)
  - DRUG INEFFECTIVE [None]
  - HYPOAESTHESIA [None]
  - MYALGIA [None]
  - PAIN [None]
  - POOR QUALITY SLEEP [None]
